FAERS Safety Report 16735404 (Version 1)
Quarter: 2019Q4

REPORT INFORMATION
  Report Type: Spontaneous
  Country: US (occurrence: US)
  Receive Date: 20190823
  Receipt Date: 20190823
  Transmission Date: 20200122
  Serious: Yes (Death)
  Sender: FDA-Public Use
  Company Number: None

PATIENT
  Age: 77 Year
  Sex: Male

DRUGS (11)
  1. ENBREL [Suspect]
     Active Substance: ETANERCEPT
     Indication: RHEUMATOID ARTHRITIS
     Dosage: ?          OTHER FREQUENCY:EVERY WEEK;?
     Route: 058
     Dates: start: 20151218, end: 20190607
  2. FEROSUL [Concomitant]
     Dates: start: 20190305
  3. LANTUS [Concomitant]
     Active Substance: INSULIN GLARGINE
  4. FUROSEMIDE. [Concomitant]
     Active Substance: FUROSEMIDE
     Dates: start: 20190313
  5. WARFARIN [Concomitant]
     Active Substance: WARFARIN
     Dates: start: 20181023
  6. ACTIGALL [Concomitant]
     Active Substance: URSODIOL
     Dates: start: 20111110
  7. SODIUM BICARB [Concomitant]
     Active Substance: SODIUM BICARBONATE
     Dates: start: 20190103
  8. ALLOPURINOL. [Concomitant]
     Active Substance: ALLOPURINOL
     Dates: start: 20190227
  9. HYDRALAZINE [Concomitant]
     Active Substance: HYDRALAZINE HYDROCHLORIDE
     Dates: start: 20181023
  10. LABETALOL [Concomitant]
     Active Substance: LABETALOL\LABETALOL HYDROCHLORIDE
     Dates: start: 20181001
  11. DILTIAZEM. [Concomitant]
     Active Substance: DILTIAZEM
     Dates: start: 20180622

REACTIONS (1)
  - Death [None]
